FAERS Safety Report 9463862 (Version 2)
Quarter: 2013Q3

REPORT INFORMATION
  Report Type: Spontaneous
  Country: CA (occurrence: CA)
  Receive Date: 20130819
  Receipt Date: 20130919
  Transmission Date: 20140515
  Serious: Yes (Death, Life-Threatening, Hospitalization, Disabling, Other)
  Sender: FDA-Public Use
  Company Number: CA-PFIZER INC-2013236918

PATIENT
  Age: 49 Year
  Sex: Male
  Weight: 58 kg

DRUGS (1)
  1. XALKORI [Suspect]
     Indication: NON-SMALL CELL LUNG CANCER
     Dosage: 250 MG, 2X/DAY
     Dates: start: 20130515

REACTIONS (3)
  - Pneumonia [Fatal]
  - Disease progression [Fatal]
  - Non-small cell lung cancer [Fatal]
